FAERS Safety Report 4916554-2 (Version None)
Quarter: 2006Q1

REPORT INFORMATION
  Report Type: 
  Country: None (occurrence: None)
  Receive Date: 20060216
  Receipt Date: 20060216
  Transmission Date: 20060701
  Serious: No
  Sender: FDA-Public Use
  Company Number: None

PATIENT
  Sex: Female
  Weight: 70.6 kg

DRUGS (2)
  1. CARBOPLATIN [Suspect]
     Dosage: 660 IV
     Route: 042
     Dates: start: 20060209
  2. GEMZAR [Concomitant]

REACTIONS (7)
  - DYSPNOEA [None]
  - FLUSHING [None]
  - INFUSION RELATED REACTION [None]
  - NAUSEA [None]
  - PARAESTHESIA [None]
  - STRIDOR [None]
  - SWELLING FACE [None]
